FAERS Safety Report 6402901-1 (Version None)
Quarter: 2009Q4

REPORT INFORMATION
  Report Type: 
  Country: None (occurrence: None)
  Receive Date: 20091014
  Receipt Date: 20091014
  Transmission Date: 20100525
  Serious: No
  Sender: FDA-Public Use
  Company Number: None

PATIENT
  Age: 88 Year
  Sex: Female
  Weight: 57 kg

DRUGS (1)
  1. LOVENOX [Suspect]
     Dosage: 30MG
     Dates: start: 20090916

REACTIONS (1)
  - DEVICE MALFUNCTION [None]
